FAERS Safety Report 8780334 (Version 1)
Quarter: 2012Q4

REPORT INFORMATION
  Report Type: Spontaneous
  Country: US (occurrence: None)
  Receive Date: 20120905
  Receipt Date: 20120905
  Transmission Date: 20130627
  Serious: No
  Sender: FDA-Public Use
  Company Number: None

PATIENT
  Age: 24 Month
  Sex: Male

DRUGS (1)
  1. GENOTROPIN [Suspect]
     Indication: PANHYPOPITUITARISM
     Dates: start: 20120404, end: 20120829

REACTIONS (1)
  - Tooth discolouration [None]
